FAERS Safety Report 7282352-0 (Version None)
Quarter: 2011Q1

REPORT INFORMATION
  Report Type: 
  Country: None (occurrence: None)
  Receive Date: 20110209
  Receipt Date: 20110127
  Transmission Date: 20110831
  Serious: Yes (Hospitalization, Other)
  Sender: FDA-Public Use
  Company Number: ES-ELI_LILLY_AND_COMPANY-ES201011007107

PATIENT
  Age: 39 Year
  Sex: Male

DRUGS (13)
  1. RASILEZ [Concomitant]
     Indication: RENOVASCULAR HYPERTENSION
     Dosage: UNK, 2/D
  2. EMCONCOR [Concomitant]
     Indication: RENOVASCULAR HYPERTENSION
     Dosage: 10 MG, EVERY 8 HRS
  3. OMEPRAZOLE [Concomitant]
     Dosage: 1 D/F, DAILY (1/D)
  4. TORSEMIDE [Concomitant]
     Dosage: 5 MG, 2/D
  5. ZARATOR [Concomitant]
     Indication: DYSLIPIDAEMIA
  6. SECALIP [Concomitant]
     Indication: DYSLIPIDAEMIA
  7. PLAVIX [Concomitant]
     Indication: PROPHYLAXIS
     Dosage: 75 MG, DAILY (1/D)
  8. HUMALOG [Concomitant]
     Indication: DIABETES MELLITUS
     Dosage: 38 D/F, EACH EVENING
  9. CARDURA [Concomitant]
     Indication: RENOVASCULAR HYPERTENSION
     Dosage: 8 MG, 2/D
  10. ADIRO [Concomitant]
     Indication: PROPHYLAXIS
     Dosage: 100 MG, DAILY (1/D)
  11. BYETTA [Suspect]
     Indication: TYPE 2 DIABETES MELLITUS
     Dosage: 10 D/F, 2/D
     Dates: start: 20101119
  12. VALIUM [Concomitant]
     Indication: ABNORMAL BEHAVIOUR
     Dosage: 10 MG, EVERY 8 HRS
  13. HUMALOG MIX 50 [Concomitant]
     Indication: DIABETES MELLITUS
     Dosage: 36 D/F, 2/D

REACTIONS (5)
  - WEIGHT DECREASED [None]
  - PANCREATITIS [None]
  - OFF LABEL USE [None]
  - VISION BLURRED [None]
  - RENAL FAILURE CHRONIC [None]
